FAERS Safety Report 11891001 (Version 3)
Quarter: 2017Q4

REPORT INFORMATION
  Report Type: Spontaneous
  Country: US (occurrence: US)
  Receive Date: 20160106
  Receipt Date: 20171124
  Transmission Date: 20180320
  Serious: Yes (Other)
  Sender: FDA-Public Use
  Company Number: US-UCBSA-2015007772

PATIENT
  Age: 44 Year
  Sex: Male
  Weight: 84 kg

DRUGS (5)
  1. METFORMIN [Concomitant]
     Active Substance: METFORMIN HYDROCHLORIDE
     Indication: DIABETES MELLITUS
     Dosage: 6 YEARS AGO
     Route: 048
  2. KEPPRA [Suspect]
     Active Substance: LEVETIRACETAM
     Indication: SEIZURE
     Dosage: 2000 MG, 2X/DAY (BID); 6 YEARS AGO; 1000/4 DAILY
  3. ENALAPRIL [Concomitant]
     Active Substance: ENALAPRIL
     Indication: HYPERTENSION
     Dosage: 5 MG, ONCE DAILY (QD)
     Route: 048
  4. DIVALPROEX [Concomitant]
     Active Substance: DIVALPROEX SODIUM
     Indication: PRODUCT USED FOR UNKNOWN INDICATION
     Dosage: UNK
  5. VIMPAT [Suspect]
     Active Substance: LACOSAMIDE
     Indication: SEIZURE
     Dosage: 200 MG, 2X/DAY (BID); 6 YEARS AGO
     Route: 048

REACTIONS (6)
  - Unevaluable event [Not Recovered/Not Resolved]
  - Seizure [Recovered/Resolved]
  - Off label use [Unknown]
  - Disturbance in attention [Not Recovered/Not Resolved]
  - Overdose [Unknown]
  - Sleep apnoea syndrome [Unknown]

NARRATIVE: CASE EVENT DATE: 201404
